FAERS Safety Report 24172386 (Version 1)
Quarter: 2024Q3

REPORT INFORMATION
  Report Type: Report from Study
  Country: US (occurrence: None)
  Receive Date: 20240805
  Receipt Date: 20240805
  Transmission Date: 20241016
  Serious: Yes (Hospitalization)
  Sender: ASTRAZENECA
  Company Number: 2021A733402

PATIENT
  Sex: Female

DRUGS (1)
  1. FASENRA [Suspect]
     Active Substance: BENRALIZUMAB
     Indication: Asthma
     Dosage: EVERY 4WK, FOR 3 DOSES, THEN EVERY 8WK THERE AFTER.
     Route: 058
     Dates: start: 20210824

REACTIONS (3)
  - Heart rate decreased [Recovering/Resolving]
  - Laryngitis [Recovering/Resolving]
  - Asthma [Recovering/Resolving]
